FAERS Safety Report 7980659-2 (Version None)
Quarter: 2011Q4

REPORT INFORMATION
  Report Type: 
  Country: None (occurrence: None)
  Receive Date: 20111214
  Receipt Date: 20111208
  Transmission Date: 20120403
  Serious: Yes (Hospitalization)
  Sender: FDA-Public Use
  Company Number: SE-PFIZER INC-2011299503

PATIENT
  Age: 88 Year
  Sex: Male

DRUGS (3)
  1. GLIBENCLAMIDE [Concomitant]
     Dosage: UNK
     Dates: end: 20111001
  2. METFORMIN [Concomitant]
  3. GLIPIZIDE [Suspect]
     Indication: DIABETES MELLITUS
     Dosage: UNK
     Route: 048
     Dates: start: 20111001, end: 20111012

REACTIONS (1)
  - HALLUCINATION, VISUAL [None]
